FAERS Safety Report 9257554 (Version 1)
Quarter: 2013Q1

REPORT INFORMATION
  Report Type: Spontaneous
  Country: US (occurrence: None)
  Receive Date: 20121212
  Receipt Date: 20121212
  Transmission Date: 20140127
  Serious: No
  Sender: FDA-Public Use
  Company Number: 1210USA005383

PATIENT
  Sex: 0

DRUGS (3)
  1. VICTRELIS (BOCEPREVIR) CAPSULE, 200MG [Suspect]
     Dosage: 4 DF, Q8H, ORAL
     Route: 048
     Dates: start: 201209
  2. PEGASYS [Suspect]
     Dosage: UNK
     Dates: start: 201209
  3. REBETOL (RIBAVIRIN) CAPSULE [Suspect]
     Dosage: UNK
     Dates: start: 201209

REACTIONS (2)
  - Inappropriate schedule of drug administration [None]
  - No adverse event [None]
